FAERS Safety Report 6438322-5 (Version None)
Quarter: 2009Q4

REPORT INFORMATION
  Report Type: 
  Country: None (occurrence: None)
  Receive Date: 20091112
  Receipt Date: 20091106
  Transmission Date: 20100525
  Serious: Yes (Death, Hospitalization)
  Sender: FDA-Public Use
  Company Number: CH-CELGENEUS-151-50794-09110014

PATIENT
  Sex: Female

DRUGS (1)
  1. VIDAZA [Suspect]
     Route: 058
     Dates: start: 20090814, end: 20091012

REACTIONS (3)
  - ANASTOMOTIC COMPLICATION [None]
  - FEBRILE BONE MARROW APLASIA [None]
  - INFECTION [None]
